FAERS Safety Report 8513647-8 (Version None)
Quarter: 2012Q3

REPORT INFORMATION
  Report Type: 
  Country: None (occurrence: None)
  Receive Date: 20120717
  Receipt Date: 20120711
  Transmission Date: 20120928
  Serious: No
  Sender: FDA-Public Use
  Company Number: US-PFIZER INC-2012151047

PATIENT
  Age: 96 Year
  Sex: Male

DRUGS (4)
  1. FLECTOR [Suspect]
     Indication: SWELLING
  2. NAPROXEN [Suspect]
     Dosage: 500 ML, 2X/DAY
     Dates: start: 20120618
  3. FLECTOR [Suspect]
     Indication: ARTHRALGIA
     Dosage: UNK
     Route: 062
     Dates: start: 20120619
  4. FLECTOR [Suspect]
     Indication: PAIN IN EXTREMITY

REACTIONS (4)
  - ABDOMINAL DISCOMFORT [None]
  - CONDITION AGGRAVATED [None]
  - DRUG INEFFECTIVE [None]
  - DIARRHOEA [None]
